FAERS Safety Report 6486236-7 (Version None)
Quarter: 2009Q4

REPORT INFORMATION
  Report Type: 
  Country: None (occurrence: None)
  Receive Date: 20091209
  Receipt Date: 20090821
  Transmission Date: 20100525
  Serious: No
  Sender: FDA-Public Use
  Company Number: US-AMGEN-KDL357559

PATIENT
  Sex: Female
  Weight: 72.6 kg

DRUGS (8)
  1. ENBREL [Suspect]
     Indication: RHEUMATOID ARTHRITIS
     Route: 058
     Dates: start: 20070109
  2. METHOTREXATE [Concomitant]
     Route: 048
  3. FOLIC ACID [Concomitant]
  4. TYLENOL (CAPLET) [Concomitant]
  5. CALCIUM [Concomitant]
  6. BONIVA [Concomitant]
  7. VITAMIN B-12 [Concomitant]
  8. ACTONEL [Concomitant]

REACTIONS (1)
  - GLAUCOMA [None]
